FAERS Safety Report 5993852-5 (Version None)
Quarter: 2008Q4

REPORT INFORMATION
  Report Type: 
  Country: None (occurrence: None)
  Receive Date: 20081212
  Receipt Date: 20080902
  Transmission Date: 20090506
  Serious: No
  Sender: FDA-Public Use
  Company Number: US-ABBOTT-08P-163-0441750-00

PATIENT
  Sex: Female
  Weight: 120.5 kg

DRUGS (3)
  1. HUMIRA [Suspect]
     Indication: CROHN'S DISEASE
     Route: 058
     Dates: start: 20080215, end: 20080307
  2. HUMIRA [Suspect]
     Indication: PSORIASIS
     Route: 058
     Dates: start: 20080307, end: 20080311
  3. HUMIRA [Suspect]

REACTIONS (10)
  - ERYTHEMA [None]
  - PAIN [None]
  - PRURITUS [None]
  - PSORIASIS [None]
  - RASH [None]
  - RASH MACULAR [None]
  - RASH PAPULAR [None]
  - SCAR [None]
  - SKIN WARM [None]
  - URTICARIA [None]
